FAERS Safety Report 13612796 (Version 2)
Quarter: 2018Q1

REPORT INFORMATION
  Report Type: Spontaneous
  Country: US (occurrence: US)
  Receive Date: 20170605
  Receipt Date: 20180105
  Transmission Date: 20180508
  Serious: No
  Sender: FDA-Public Use
  Company Number: US-ALLERGAN-1716482US

PATIENT
  Age: 4 Decade
  Sex: Male

DRUGS (2)
  1. KYBELLA [Suspect]
     Active Substance: DEOXYCHOLIC ACID
     Indication: FAT TISSUE INCREASED
     Dosage: 50 MG, SINGLE
     Route: 058
     Dates: start: 20170330, end: 20170330
  2. KYBELLA [Suspect]
     Active Substance: DEOXYCHOLIC ACID
     Dosage: 30 MG, SINGLE
     Route: 058
     Dates: start: 20170510, end: 20170510

REACTIONS (1)
  - Alopecia [Unknown]
